FAERS Safety Report 12663845 (Version 1)
Quarter: 2016Q3

REPORT INFORMATION
  Report Type: Report from Study
  Country: CA (occurrence: CA)
  Receive Date: 20160818
  Receipt Date: 20160818
  Transmission Date: 20161109
  Serious: Yes (Hospitalization)
  Sender: FDA-Public Use
  Company Number: CA-JNJFOC-20160810658

PATIENT
  Age: 20 Year
  Sex: Female
  Weight: 73 kg

DRUGS (1)
  1. REMICADE [Suspect]
     Active Substance: INFLIXIMAB
     Indication: CROHN^S DISEASE
     Route: 042
     Dates: start: 20121128

REACTIONS (6)
  - Cellulitis [Recovering/Resolving]
  - Off label use [Unknown]
  - Crohn^s disease [Unknown]
  - Peritonitis [Recovering/Resolving]
  - Appendicitis [Recovering/Resolving]
  - Product use issue [Unknown]

NARRATIVE: CASE EVENT DATE: 20121128
